FAERS Safety Report 17519428 (Version 2)
Quarter: 2021Q1

REPORT INFORMATION
  Report Type: Spontaneous
  Country: US (occurrence: US)
  Receive Date: 20200310
  Receipt Date: 20210312
  Transmission Date: 20210419
  Serious: No
  Sender: FDA-Public Use
  Company Number: US-ALLERGAN-2003151US

PATIENT
  Age: 62 Year
  Sex: Female

DRUGS (4)
  1. ESTRACE [Suspect]
     Active Substance: ESTRADIOL
     Indication: VULVOVAGINAL PAIN
  2. ESTRACE [Suspect]
     Active Substance: ESTRADIOL
     Indication: HORMONE REPLACEMENT THERAPY
     Dosage: 2 GR TO APPLY DAILY FOR 2 WEEKS
     Route: 065
     Dates: start: 20191224, end: 20191228
  3. ESTRACE [Suspect]
     Active Substance: ESTRADIOL
     Indication: VULVOVAGINAL DRYNESS
  4. ESTRACE [Suspect]
     Active Substance: ESTRADIOL
     Indication: VULVOVAGINAL PRURITUS

REACTIONS (3)
  - Premenstrual syndrome [Recovered/Resolved]
  - Ovarian disorder [Recovered/Resolved]
  - Premenstrual pain [Recovered/Resolved]

NARRATIVE: CASE EVENT DATE: 201912
